FAERS Safety Report 17630354 (Version 1)
Quarter: 2020Q2

REPORT INFORMATION
  Report Type: Spontaneous
  Country: US (occurrence: US)
  Receive Date: 20200401
  Receipt Date: 20200401
  Transmission Date: 20200713
  Serious: Yes (Hospitalization, Other)
  Sender: FDA-Public Use
  Company Number: None

PATIENT
  Age: 66 Year
  Sex: Male
  Weight: 77 kg

DRUGS (2)
  1. CEFTRIAXONE (CEFTRIAXONE NA 2GM/VIL INJ) [Suspect]
     Active Substance: CEFTRIAXONE
     Route: 042
     Dates: start: 20200116, end: 20200117
  2. PIPERACILLIN/TAZOBACTAM (PIPERACILLIN NA 4GM/TAZOBACTAM NA 0.5GM/VIL INJ) [Suspect]
     Active Substance: PIPERACILLIN SODIUM\TAZOBACTAM SODIUM
     Dosage: ?          OTHER STRENGTH:4GM 0.5GM 100ML;?
     Route: 042
     Dates: start: 20200117, end: 20200121

REACTIONS (19)
  - Dehydration [None]
  - Hypotension [None]
  - Urticaria [None]
  - Bacteraemia [None]
  - Flushing [None]
  - Hypokalaemia [None]
  - Asthenia [None]
  - Fatigue [None]
  - Leukopenia [None]
  - Hepatic encephalopathy [None]
  - Supraventricular tachycardia [None]
  - Blood culture negative [None]
  - Oesophagitis [None]
  - Gastritis [None]
  - Anaemia [None]
  - Enterococcus test positive [None]
  - Culture urine positive [None]
  - Escherichia test positive [None]
  - Acute kidney injury [None]

NARRATIVE: CASE EVENT DATE: 20200121
